FAERS Safety Report 26054134 (Version 3)
Quarter: 2025Q4

REPORT INFORMATION
  Report Type: Spontaneous
  Country: AR (occurrence: AR)
  Receive Date: 20251117
  Receipt Date: 20251224
  Transmission Date: 20260117
  Serious: No
  Sender: PFIZER
  Company Number: AR-PFIZER INC-202500223777

PATIENT
  Age: 14 Year
  Sex: Male

DRUGS (1)
  1. GENOTROPIN [Suspect]
     Active Substance: SOMATROPIN
     Indication: Growth hormone deficiency
     Dosage: 1.2 MG, 7 TIMES PER WEEK
     Dates: start: 20250822

REACTIONS (5)
  - Device mechanical issue [Unknown]
  - Device leakage [Unknown]
  - Device breakage [Unknown]
  - Device difficult to use [Unknown]
  - Anxiety [Unknown]

NARRATIVE: CASE EVENT DATE: 20251001
